FAERS Safety Report 10008840 (Version 2)
Quarter: 2014Q1

REPORT INFORMATION
  Report Type: Spontaneous
  Country: US (occurrence: US)
  Receive Date: 20140313
  Receipt Date: 20140313
  Transmission Date: 20141002
  Serious: Yes (Other)
  Sender: FDA-Public Use
  Company Number: US-INCYTE CORPORATION-2012IN000591

PATIENT
  Age: 80 Year
  Sex: Female

DRUGS (11)
  1. JAKAFI [Suspect]
     Indication: MYELOFIBROSIS
     Dosage: 10 MG AM, 5 MG PM
     Route: 048
     Dates: start: 20120112, end: 20120402
  2. JAKAFI [Suspect]
     Dosage: 5 MG, BID
     Route: 048
     Dates: start: 20120405
  3. COUMADIN SODIUM [Concomitant]
     Dosage: UNK
  4. SYNTHROID [Concomitant]
     Dosage: UNK
  5. ATENOLOL [Concomitant]
     Dosage: UNK
  6. MULTIVITAMIN [Concomitant]
  7. GLUCOSAMINE [Concomitant]
     Dosage: UNK
  8. CALCIUM [Concomitant]
     Indication: SUPPLEMENTATION THERAPY
     Dosage: UNK
  9. LASIX [Concomitant]
     Dosage: UNK
  10. BENADRYL [Concomitant]
     Dosage: UNK
  11. OXYCONTIN [Concomitant]
     Dosage: UNK

REACTIONS (2)
  - Platelet count decreased [Unknown]
  - Blood count abnormal [Unknown]
